FAERS Safety Report 21790040 (Version 1)
Quarter: 2022Q4

REPORT INFORMATION
  Report Type: Spontaneous
  Country: CN (occurrence: CN)
  Receive Date: 20221228
  Receipt Date: 20221228
  Transmission Date: 20230113
  Serious: Yes (Other)
  Sender: FDA-Public Use
  Company Number: CN-002147023-NVSC2022CN297896

PATIENT
  Age: 71 Year
  Sex: Male

DRUGS (2)
  1. GLIVEC [Suspect]
     Active Substance: IMATINIB MESYLATE
     Indication: Gastrointestinal stromal tumour
     Dosage: UNK
     Route: 048
  2. SUTENT [Concomitant]
     Active Substance: SUNITINIB MALATE
     Indication: Product used for unknown indication
     Dosage: 4 DOSAGE FORM, QD (4 PILLS IN THE MORNING)
     Route: 048
     Dates: start: 20221123, end: 20221220

REACTIONS (4)
  - Metastases to liver [Unknown]
  - Pharyngeal ulceration [Unknown]
  - COVID-19 [Unknown]
  - Cough [Unknown]
